FAERS Safety Report 5480091-X (Version None)
Quarter: 2007Q4

REPORT INFORMATION
  Report Type: 
  Country: None (occurrence: None)
  Receive Date: 20071008
  Receipt Date: 20070926
  Transmission Date: 20080405
  Serious: Yes (Other)
  Sender: FDA-Public Use
  Company Number: US-PFIZER INC-2007082316

PATIENT
  Sex: Male
  Weight: 112.7 kg

DRUGS (7)
  1. CHANTIX [Suspect]
     Indication: SMOKING CESSATION THERAPY
  2. CYMBALTA [Concomitant]
  3. TRAMADOL HCL [Concomitant]
  4. ALBUTEROL [Concomitant]
  5. ADVAIR DISKUS 100/50 [Concomitant]
  6. AMOXICILLIN [Concomitant]
  7. CLINDAMYCIN HCL [Concomitant]

REACTIONS (2)
  - NIGHTMARE [None]
  - PANIC ATTACK [None]
